FAERS Safety Report 17651191 (Version 2)
Quarter: 2020Q2

REPORT INFORMATION
  Report Type: Report from Study
  Country: IT (occurrence: IT)
  Receive Date: 20200408
  Receipt Date: 20200421
  Transmission Date: 20200713
  Serious: Yes (Other)
  Sender: FDA-Public Use
  Company Number: IT-BAXTER-2020BAX007663

PATIENT
  Age: 64 Year
  Sex: Male

DRUGS (6)
  1. VINCRISTINE [Suspect]
     Active Substance: VINCRISTINE
     Indication: HAEMATOPOIETIC NEOPLASM
     Dosage: HYPER-CVAD REGIMEN, COURSE A AND B
     Route: 065
  2. DOXIL [Suspect]
     Active Substance: DOXORUBICIN HYDROCHLORIDE
     Indication: HAEMATOPOIETIC NEOPLASM
     Route: 065
  3. ENDOXAN BAXTER [Suspect]
     Active Substance: CYCLOPHOSPHAMIDE
     Indication: HAEMATOPOIETIC NEOPLASM
     Dosage: HYPER-CVAD REGIMEN, COURSE A AND B
     Route: 065
  4. DEXAMETHASONE. [Suspect]
     Active Substance: DEXAMETHASONE
     Indication: HAEMATOPOIETIC NEOPLASM
     Dosage: HYPER-CVAD REGIMEN, COURSE A AND B
     Route: 065
  5. METHOTREXATE. [Suspect]
     Active Substance: METHOTREXATE
     Indication: HAEMATOPOIETIC NEOPLASM
     Dosage: HIGH-DOSE, HYPER-CVAD REGIMEN, COURSE A AND B
     Route: 065
  6. CYTARABINE. [Suspect]
     Active Substance: CYTARABINE
     Indication: HAEMATOPOIETIC NEOPLASM
     Dosage: HYPER-CVAD REGIMEN, COURSE A AND B
     Route: 065

REACTIONS (3)
  - Mucosal inflammation [Unknown]
  - Anal abscess [Unknown]
  - Infected dermal cyst [Unknown]
